FAERS Safety Report 15677786 (Version 1)
Quarter: 2018Q4

REPORT INFORMATION
  Report Type: Spontaneous
  Country: US (occurrence: US)
  Receive Date: 20181130
  Receipt Date: 20181130
  Transmission Date: 20190205
  Serious: Yes (Hospitalization, Other)
  Sender: FDA-Public Use
  Company Number: US-ALLERGAN-1855358US

PATIENT
  Age: 48 Year
  Sex: Male

DRUGS (3)
  1. AMFETAMINE W/DEXAMFETAMINE [Interacting]
     Active Substance: AMPHETAMINE SULFATE\DEXTROAMPHETAMINE
     Indication: PERFORMANCE ENHANCING PRODUCT USE
     Dosage: 60 MG, QD, IN CYCLICAL FASHION FOR 7 MONTHS EACH YEAR FOR THE LAST 4 YEARS
     Route: 065
  2. CAFFEINE. [Interacting]
     Active Substance: CAFFEINE
     Indication: PRODUCT USED FOR UNKNOWN INDICATION
     Dosage: MINIMUM 7 EXPRESSOS, QAM
     Route: 048
  3. TESTOSTERONE UNK [Suspect]
     Active Substance: TESTOSTERONE
     Indication: PERFORMANCE ENHANCING PRODUCT USE
     Dosage: IN CYCLICAL FASHION FOR 7 MONTHS EACH YEAR FOR THE LAST 4 YEARS
     Route: 065

REACTIONS (3)
  - Psychotic disorder [Recovered/Resolved]
  - Intentional product misuse [Unknown]
  - Food interaction [Recovered/Resolved]
